FAERS Safety Report 4343672-2 (Version None)
Quarter: 2004Q2

REPORT INFORMATION
  Report Type: 
  Country: None (occurrence: None)
  Receive Date: 20040419
  Receipt Date: 20040401
  Transmission Date: 20050107
  Serious: Yes (Hospitalization)
  Sender: FDA-Public Use
  Company Number: CEL-2004-00637-ROC

PATIENT
  Age: 2 Month
  Sex: Female

DRUGS (2)
  1. PREDNISOLONE [Suspect]
     Indication: HAEMANGIOMA
     Dosage: 3.5MG/KG/PER DAY PO
     Route: 048
  2. METHYLPREDNISOLONE [Suspect]
     Indication: HAEMANGIOMA
     Dosage: 3MG/KG/DAY IV
     Route: 042

REACTIONS (7)
  - BLOOD LACTATE DEHYDROGENASE INCREASED [None]
  - CD4 LYMPHOCYTES DECREASED [None]
  - EPENDYMOMA [None]
  - HYPOXIA [None]
  - LUNG HYPERINFLATION [None]
  - PNEUMOCYSTIS CARINII PNEUMONIA [None]
  - RESPIRATORY DISTRESS [None]
